FAERS Safety Report 8172414-8 (Version None)
Quarter: 2012Q1

REPORT INFORMATION
  Report Type: 
  Country: None (occurrence: None)
  Receive Date: 20120224
  Receipt Date: 20120224
  Transmission Date: 20120608
  Serious: Yes (Hospitalization)
  Sender: FDA-Public Use
  Company Number: None

PATIENT
  Age: 48 Year
  Sex: Female

DRUGS (2)
  1. HYDROCHLORIZIDE [Concomitant]
  2. HYDROXYZINE HYDROCHLORIDE [Suspect]
     Indication: ANTIALLERGIC THERAPY
     Dosage: 25 MG, 3/DAY, ORAL  1 DAY, 1 TABLET
     Route: 048

REACTIONS (5)
  - MIDDLE INSOMNIA [None]
  - ASTHENIA [None]
  - CONFUSIONAL STATE [None]
  - DIZZINESS [None]
  - CHEST DISCOMFORT [None]
